FAERS Safety Report 19647643 (Version 4)
Quarter: 2024Q3

REPORT INFORMATION
  Report Type: Spontaneous
  Country: US (occurrence: US)
  Receive Date: 20210802
  Receipt Date: 20240909
  Transmission Date: 20241017
  Serious: No
  Sender: ORGANON
  Company Number: US-ORGANON-O2107USA002519

PATIENT
  Age: 18 Year
  Sex: Female
  Weight: 99.773 kg

DRUGS (2)
  1. NEXPLANON [Suspect]
     Active Substance: ETONOGESTREL
     Indication: Contraception
     Dosage: 1 IMPLANT , 68 MG, ONCE, RIGHT ARM
     Route: 059
     Dates: start: 20210723, end: 20210723
  2. NEXPLANON [Suspect]
     Active Substance: ETONOGESTREL
     Dosage: 1 IMPLANT, 68 MG (IN RIGHT ARM)
     Route: 059
     Dates: start: 20240820, end: 20240820

REACTIONS (5)
  - Complication of device insertion [Not Recovered/Not Resolved]
  - Product quality issue [Unknown]
  - Complication of device insertion [Not Recovered/Not Resolved]
  - Product quality issue [Unknown]
  - No adverse event [Unknown]

NARRATIVE: CASE EVENT DATE: 20210723
